FAERS Safety Report 8096768-6 (Version None)
Quarter: 2012Q1

REPORT INFORMATION
  Report Type: 
  Country: None (occurrence: None)
  Receive Date: 20120129
  Receipt Date: 20111208
  Transmission Date: 20120608
  Serious: No
  Sender: FDA-Public Use
  Company Number: US-ABBOTT-11P-163-0862394-00

PATIENT
  Sex: Female
  Weight: 60.836 kg

DRUGS (4)
  1. SYNTHROID [Concomitant]
     Indication: HYPOTHYROIDISM
  2. HUMIRA [Suspect]
     Indication: RHEUMATOID ARTHRITIS
     Route: 058
     Dates: start: 20110601, end: 20110901
  3. HUMIRA [Suspect]
     Route: 058
     Dates: start: 20111004
  4. BONIVA [Concomitant]
     Indication: OSTEOPOROSIS

REACTIONS (2)
  - ARTHRALGIA [None]
  - INJECTION SITE PAIN [None]
